FAERS Safety Report 6013868-2 (Version None)
Quarter: 2008Q4

REPORT INFORMATION
  Report Type: 
  Country: None (occurrence: None)
  Receive Date: 20081219
  Receipt Date: 20081215
  Transmission Date: 20090506
  Serious: Yes (Hospitalization)
  Sender: FDA-Public Use
  Company Number: FR-WYE-G02795908

PATIENT
  Sex: Male

DRUGS (12)
  1. TAZOCILLINE [Suspect]
     Indication: INJURY CORNEAL
     Route: 042
     Dates: start: 20081023, end: 20081028
  2. PIPERACILLIN [Suspect]
     Indication: INJURY CORNEAL
     Route: 042
     Dates: start: 20081002, end: 20081022
  3. FUNGIZONE [Suspect]
     Indication: INJURY CORNEAL
     Route: 042
     Dates: start: 20081009, end: 20081028
  4. FUNGIZONE [Suspect]
     Dosage: UNKNOWN
     Route: 047
     Dates: start: 20081029, end: 20081104
  5. CHIBROXINE [Concomitant]
     Indication: INJURY CORNEAL
     Dosage: UNKNOWN
     Route: 047
     Dates: start: 20081029, end: 20081104
  6. TICARCILLIN [Concomitant]
     Indication: INJURY CORNEAL
     Route: 047
     Dates: start: 20081002, end: 20081028
  7. GENTALLINE [Concomitant]
     Indication: INJURY CORNEAL
     Route: 047
     Dates: start: 20081002, end: 20081028
  8. TOBREX [Concomitant]
     Indication: INJURY CORNEAL
     Dosage: UNKNOWN
     Route: 047
     Dates: start: 20081029, end: 20081104
  9. RIFADIN [Concomitant]
     Indication: INJURY CORNEAL
     Dosage: UNKNOWN
     Route: 047
     Dates: start: 20081029, end: 20081104
  10. TAVANIC [Suspect]
     Indication: INJURY CORNEAL
     Route: 048
     Dates: start: 20081002, end: 20081028
  11. VANCOMYCIN [Suspect]
     Indication: INJURY CORNEAL
     Route: 042
     Dates: start: 20081023, end: 20081027
  12. VANCOMYCIN [Suspect]
     Route: 047
     Dates: start: 20081002, end: 20081028

REACTIONS (3)
  - FEBRILE NEUTROPENIA [None]
  - LEUKOPENIA [None]
  - TOXIC SKIN ERUPTION [None]
